FAERS Safety Report 5733798-0 (Version None)
Quarter: 2008Q2

REPORT INFORMATION
  Report Type: 
  Country: None (occurrence: None)
  Receive Date: 20080509
  Receipt Date: 20080505
  Transmission Date: 20081010
  Serious: Yes (Death, Other)
  Sender: FDA-Public Use
  Company Number: NO-PFIZER INC-2008033585

PATIENT
  Age: 73 Year
  Sex: Female

DRUGS (5)
  1. DETRUSITOL SR [Suspect]
     Route: 048
  2. CREON [Concomitant]
     Route: 048
  3. TRIATEC [Concomitant]
     Route: 048
  4. KALEORID [Concomitant]
     Route: 048
  5. DIAZEPAM [Concomitant]

REACTIONS (1)
  - SUICIDE ATTEMPT [None]
